FAERS Safety Report 11250615 (Version 2)
Quarter: 2015Q3

REPORT INFORMATION
  Report Type: Spontaneous
  Country: US (occurrence: US)
  Receive Date: 20150708
  Receipt Date: 20150803
  Transmission Date: 20151125
  Serious: No
  Sender: FDA-Public Use
  Company Number: US-ELI_LILLY_AND_COMPANY-US201007000832

PATIENT
  Age: 63 Year
  Sex: Female

DRUGS (1)
  1. ZYPREXA RELPREVV [Suspect]
     Active Substance: OLANZAPINE PAMOATE
     Indication: SCHIZOPHRENIA
     Dosage: 405 MG, MONTHLY (1/M)
     Route: 055
     Dates: start: 20100630

REACTIONS (5)
  - Dyspnoea [Recovered/Resolved]
  - Cough [Recovered/Resolved]
  - Dysphonia [Recovered/Resolved]
  - Product preparation error [Recovered/Resolved]
  - Hypersensitivity [Not Recovered/Not Resolved]

NARRATIVE: CASE EVENT DATE: 20110120
